FAERS Safety Report 10404028 (Version 2)
Quarter: 2014Q1

REPORT INFORMATION
  Report Type: Spontaneous
  Country: US (occurrence: None)
  Receive Date: 20131018
  Receipt Date: 20140122
  Transmission Date: 20141002
  Serious: No
  Sender: FDA-Public Use
  Company Number: AEGR000067

PATIENT
  Age: 65 Year
  Sex: Female
  Weight: 84.8 kg

DRUGS (2)
  1. JUXTAPID (LOMITAPIDE) CAPSULE, 5 MG [Suspect]
     Indication: TYPE IIA HYPERLIPIDAEMIA
     Route: 048
     Dates: start: 20130615, end: 20130616
  2. OMEGA-3 (SALMO SALAR OIL) [Concomitant]

REACTIONS (2)
  - Gastrointestinal disorder [None]
  - Tumour marker increased [None]
